FAERS Safety Report 6883382-0 (Version None)
Quarter: 2010Q3

REPORT INFORMATION
  Report Type: 
  Country: None (occurrence: None)
  Receive Date: 20100708
  Receipt Date: 20091008
  Transmission Date: 20110219
  Serious: Yes (Other)
  Sender: FDA-Public Use
  Company Number: 2009283683

PATIENT
  Age: 53 Year
  Sex: Female
  Weight: 77.1 kg

DRUGS (7)
  1. CHANTIX [Suspect]
     Indication: SMOKING CESSATION THERAPY
     Dosage: 0.5 MG, 1X/DAY, ORAL; 0.5 MG, 2X/DAY, ORAL; 1 MG, ORAL
     Route: 048
     Dates: end: 20090901
  2. CHANTIX [Suspect]
     Indication: SMOKING CESSATION THERAPY
     Dosage: 0.5 MG, 1X/DAY, ORAL; 0.5 MG, 2X/DAY, ORAL; 1 MG, ORAL
     Route: 048
     Dates: start: 20090901
  3. PRILOSEC (OMEPRAZOLE) [Concomitant]
  4. XALATAN [Concomitant]
  5. LOTENSIN [Concomitant]
  6. ZOCOR [Concomitant]
  7. ALL OTHER THERAPEUTIC PRODUCTS [Concomitant]

REACTIONS (1)
  - PHARYNGEAL OEDEMA [None]
